FAERS Safety Report 10755663 (Version 1)
Quarter: 2015Q1

REPORT INFORMATION
  Report Type: Spontaneous
  Country: US (occurrence: None)
  Receive Date: 20150123
  Receipt Date: 20150123
  Transmission Date: 20150721
  Serious: Yes (Hospitalization)
  Sender: FDA-Public Use
  Company Number: TPA2012A01475

PATIENT
  Age: 22 Month
  Sex: Male
  Weight: 13.61 kg

DRUGS (3)
  1. PREVACID SOLUTAB [Suspect]
     Active Substance: LANSOPRAZOLE
     Indication: GASTROOESOPHAGEAL REFLUX DISEASE
     Route: 048
     Dates: start: 20110812
  2. FLOVENT HFA (FLUTICASONE PROPIONATE) [Concomitant]
  3. SINGULAIR [Concomitant]
     Active Substance: MONTELUKAST SODIUM

REACTIONS (4)
  - Urticaria [None]
  - Cough [None]
  - Wheezing [None]
  - Abdominal discomfort [None]

NARRATIVE: CASE EVENT DATE: 2011
